FAERS Safety Report 5822872-6 (Version None)
Quarter: 2008Q3

REPORT INFORMATION
  Report Type: 
  Country: None (occurrence: None)
  Receive Date: 20080724
  Receipt Date: 20080724
  Transmission Date: 20090109
  Serious: Yes (Other)
  Sender: FDA-Public Use
  Company Number: None

PATIENT
  Age: 65 Year
  Sex: Female
  Weight: 46.7205 kg

DRUGS (1)
  1. VIOKASE  8 SCA TABLET  ? [Suspect]
     Indication: PANCREATITIS CHRONIC
     Dosage: 2 TO 3 TABLETS  3 OR 4 TIMES A DAY  PO
     Route: 048
     Dates: start: 20080523, end: 20080723

REACTIONS (1)
  - OEDEMA PERIPHERAL [None]
